FAERS Safety Report 4299543-3 (Version None)
Quarter: 2004Q1

REPORT INFORMATION
  Report Type: 
  Country: None (occurrence: None)
  Receive Date: 20040217
  Receipt Date: 20040205
  Transmission Date: 20041129
  Serious: Yes (Other)
  Sender: FDA-Public Use
  Company Number: 2004-01-1449

PATIENT
  Age: 50 Year
  Sex: Male

DRUGS (4)
  1. ALBUTEROL [Suspect]
     Indication: DYSPNOEA
     Dosage: ORAL AER INH
     Route: 048
     Dates: start: 20040117
  2. . [Suspect]
  3. PEG-INTRON [Suspect]
     Indication: HEPATITIS C
     Dosage: SUBCUTANEOUS
     Route: 058
     Dates: start: 20031215
  4. REBETOL [Suspect]
     Indication: HEPATITIS C
     Dosage: ORAL
     Route: 048
     Dates: start: 20031215

REACTIONS (6)
  - BLOOD DISORDER [None]
  - CONFUSIONAL STATE [None]
  - DYSPNOEA EXACERBATED [None]
  - LUNG INFECTION [None]
  - SUICIDAL IDEATION [None]
  - ULCER [None]
